FAERS Safety Report 7610914-7 (Version None)
Quarter: 2011Q3

REPORT INFORMATION
  Report Type: 
  Country: None (occurrence: None)
  Receive Date: 20110715
  Receipt Date: 20110707
  Transmission Date: 20111222
  Serious: No
  Sender: FDA-Public Use
  Company Number: US-BAYER-2011-059793

PATIENT
  Sex: Female

DRUGS (15)
  1. ACIPHEX [Concomitant]
  2. FLEXAR [Concomitant]
  3. VITAMIN B COMPLEX CAP [Concomitant]
  4. DARVOCET [Concomitant]
  5. CALCIUM CARBONATE [Concomitant]
  6. CIPROFLOXACIN HCL [Suspect]
  7. CHLORTHALIDONE [Concomitant]
  8. ALBUTEROL SULFATE AUTOHALER [Concomitant]
  9. SPIRIVA [Concomitant]
  10. MIOFLEX [Concomitant]
  11. LORTAB [Concomitant]
  12. MIRAPEX [Concomitant]
  13. VITAMIN D [Concomitant]
  14. FOSAMAX [Concomitant]
  15. ASPIRIN [Concomitant]

REACTIONS (1)
  - HYPERSENSITIVITY [None]
